FAERS Safety Report 15470753 (Version 1)
Quarter: 2018Q4

REPORT INFORMATION
  Report Type: Spontaneous
  Country: JP (occurrence: BR)
  Receive Date: 20181005
  Receipt Date: 20181005
  Transmission Date: 20190205
  Serious: Yes (Other)
  Sender: FDA-Public Use
  Company Number: JP-SUNOVION-2018SUN003853

PATIENT
  Sex: Male

DRUGS (1)
  1. LATUDA [Suspect]
     Active Substance: LURASIDONE HYDROCHLORIDE
     Indication: SCHIZOPHRENIA
     Dosage: 80 MG, UNK
     Route: 048
     Dates: start: 20180822

REACTIONS (1)
  - Homicide [Unknown]

NARRATIVE: CASE EVENT DATE: 20180920
